FAERS Safety Report 5515146-4 (Version None)
Quarter: 2007Q4

REPORT INFORMATION
  Report Type: 
  Country: None (occurrence: None)
  Receive Date: 20071113
  Receipt Date: 20070119
  Transmission Date: 20080405
  Serious: No
  Sender: FDA-Public Use
  Company Number: A0636217A

PATIENT
  Sex: Male

DRUGS (2)
  1. COREG [Suspect]
     Dosage: 12.5MG PER DAY
  2. ASMANEX TWISTHALER [Suspect]
     Indication: ASTHMA

REACTIONS (2)
  - CHEST PAIN [None]
  - DRUG INTERACTION [None]
